FAERS Safety Report 24387826 (Version 3)
Quarter: 2024Q4

REPORT INFORMATION
  Report Type: Spontaneous
  Country: ES (occurrence: ES)
  Receive Date: 20241002
  Receipt Date: 20241122
  Transmission Date: 20250114
  Serious: No
  Sender: PFIZER
  Company Number: ES-PFIZER INC-202400262804

PATIENT

DRUGS (1)
  1. SOMATROPIN [Suspect]
     Active Substance: SOMATROPIN
     Dosage: UNK

REACTIONS (4)
  - Device leakage [Unknown]
  - Liquid product physical issue [Unknown]
  - Needle issue [Unknown]
  - Product packaging quantity issue [Unknown]
